FAERS Safety Report 8311236-1 (Version None)
Quarter: 2012Q2

REPORT INFORMATION
  Report Type: 
  Country: None (occurrence: None)
  Receive Date: 20120425
  Receipt Date: 20120419
  Transmission Date: 20120825
  Serious: Yes (Hospitalization)
  Sender: FDA-Public Use
  Company Number: US-GLAXOSMITHKLINE-A0866428A

PATIENT
  Age: 54 Year
  Sex: Female
  Weight: 76.4 kg

DRUGS (8)
  1. NEXIUM [Concomitant]
  2. ZESTRIL [Concomitant]
  3. MICRONASE [Concomitant]
  4. TENORMIN [Concomitant]
  5. NORVASC [Concomitant]
  6. AVANDIA [Suspect]
     Indication: DIABETES MELLITUS
     Dosage: 4MG TWICE PER DAY
     Route: 048
     Dates: start: 20040423, end: 20050721
  7. LIPITOR [Concomitant]
  8. GLUCOPHAGE [Concomitant]

REACTIONS (5)
  - SPEECH DISORDER [None]
  - HEADACHE [None]
  - HYPOAESTHESIA [None]
  - CARDIAC DISORDER [None]
  - MYOCARDIAL INFARCTION [None]
